FAERS Safety Report 9443420 (Version 1)
Quarter: 2013Q3

REPORT INFORMATION
  Report Type: Report from Study
  Country: AR (occurrence: AR)
  Receive Date: 20130806
  Receipt Date: 20130806
  Transmission Date: 20140515
  Serious: Yes (Disabling, Other)
  Sender: FDA-Public Use
  Company Number: PHHY2013AR083326

PATIENT
  Age: 74 Year
  Sex: Female

DRUGS (4)
  1. ONBREZ [Suspect]
     Indication: CHRONIC OBSTRUCTIVE PULMONARY DISEASE
     Dosage: 150 UG, DAILY
  2. ROFLUMILAST [Concomitant]
  3. SPIRIVA [Concomitant]
  4. OXYGEN [Concomitant]

REACTIONS (6)
  - Mobility decreased [Recovering/Resolving]
  - Dyspnoea [Recovering/Resolving]
  - Cyanosis [Recovering/Resolving]
  - Depression [Recovering/Resolving]
  - Influenza like illness [Recovering/Resolving]
  - Feeling abnormal [Recovering/Resolving]
